FAERS Safety Report 5826271-2 (Version None)
Quarter: 2008Q3

REPORT INFORMATION
  Report Type: 
  Country: None (occurrence: None)
  Receive Date: 20080729
  Receipt Date: 20080717
  Transmission Date: 20090109
  Serious: Yes (Disabling)
  Sender: FDA-Public Use
  Company Number: PT-PFIZER INC-2008054627

PATIENT
  Sex: Female

DRUGS (13)
  1. LYRICA [Suspect]
     Indication: NEURALGIA
     Route: 048
     Dates: start: 20080108, end: 20080701
  2. TRANSTEC TTS [Concomitant]
     Route: 062
  3. DULCOLAX [Concomitant]
  4. BUPREX [Concomitant]
     Route: 048
  5. HYDROXYZINE [Concomitant]
     Route: 048
  6. ENALAPRIL MALEATE [Concomitant]
     Route: 048
  7. LASIX [Concomitant]
     Route: 048
  8. PLAVIX [Concomitant]
     Route: 048
  9. SERENAL [Concomitant]
     Route: 048
  10. DAFALGAN [Concomitant]
     Route: 048
  11. CALCIUM CARBONATE [Concomitant]
  12. ADALAT [Concomitant]
     Route: 048
  13. INSULIN [Concomitant]
     Route: 058

REACTIONS (8)
  - BALANCE DISORDER [None]
  - CONFUSIONAL STATE [None]
  - DIZZINESS [None]
  - DROOLING [None]
  - GAIT DISTURBANCE [None]
  - MASTICATION DISORDER [None]
  - NAUSEA [None]
  - SPEECH DISORDER [None]
